FAERS Safety Report 5347513-6 (Version None)
Quarter: 2007Q2

REPORT INFORMATION
  Report Type: 
  Country: None (occurrence: None)
  Receive Date: 20070604
  Receipt Date: 20070604
  Transmission Date: 20071010
  Serious: Yes (Hospitalization)
  Sender: FDA-Public Use
  Company Number: None

PATIENT
  Sex: Male
  Weight: 101.18 kg

DRUGS (5)
  1. GEMCITABINE HCL [Suspect]
     Dosage: 2280 MG
  2. ALIMTA [Suspect]
     Dosage: 1140 MG
  3. CYANOCOBALAMIN (VITATMIN B12) [Suspect]
     Dosage: 1000 MCG
  4. DEXAMETHASONE 0.5MG TAB [Suspect]
     Dosage: 24 MG
  5. FOLIC ACID [Suspect]
     Dosage: 30 MG

REACTIONS (10)
  - CONSTIPATION [None]
  - HAEMATURIA [None]
  - HAEMOGLOBIN ABNORMAL [None]
  - INADEQUATE ANALGESIA [None]
  - NAUSEA [None]
  - NEUTROPHIL COUNT ABNORMAL [None]
  - PAIN [None]
  - PLATELET COUNT DECREASED [None]
  - PYREXIA [None]
  - WHITE BLOOD CELL COUNT ABNORMAL [None]
